FAERS Safety Report 8941037 (Version 1)
Quarter: 2012Q4

REPORT INFORMATION
  Report Type: 
  Country: FR (occurrence: FR)
  Receive Date: 20121203
  Receipt Date: 20121203
  Transmission Date: 20130627
  Serious: Yes (Hospitalization)
  Sender: FDA-Public Use
  Company Number: FR-EISAI INC-E7389-03294-SPO-FR

PATIENT
  Age: 64 Year
  Sex: Female

DRUGS (7)
  1. HALAVEN [Suspect]
     Indication: BREAST CANCER
     Route: 041
     Dates: start: 20120712, end: 20120809
  2. CAELYX [Suspect]
     Indication: BREAST CARCINOMA
     Route: 041
     Dates: start: 20110505, end: 201201
  3. COUMADINE [Suspect]
     Route: 048
     Dates: start: 20120813
  4. CARDENSIEL [Suspect]
     Indication: DYSPNEA
     Route: 048
     Dates: start: 201206
  5. TRACLEER [Suspect]
     Indication: PULMONARY HYPERTENSION
     Route: 048
     Dates: start: 201206
  6. ZOPHREN [Suspect]
     Indication: NAUSEA
     Route: 048
     Dates: start: 20120821
  7. PRIMPERAN [Suspect]
     Indication: NAUSEA
     Dosage: UNKNOWN
     Route: 048
     Dates: start: 20120821

REACTIONS (2)
  - Cardiogenic shock [Recovering/Resolving]
  - Right ventricular failure [Recovering/Resolving]
